FAERS Safety Report 7744418-8 (Version None)
Quarter: 2011Q3

REPORT INFORMATION
  Report Type: 
  Country: None (occurrence: None)
  Receive Date: 20110912
  Receipt Date: 20110830
  Transmission Date: 20111222
  Serious: Yes (Hospitalization, Other)
  Sender: FDA-Public Use
  Company Number: US-ELI_LILLY_AND_COMPANY-US201001004818

PATIENT
  Sex: Female

DRUGS (28)
  1. MIRALAX [Concomitant]
  2. FISH OIL [Concomitant]
  3. OXAPROZIN [Concomitant]
  4. XANAX [Concomitant]
  5. ADVAIR DISKUS 100/50 [Concomitant]
  6. OXYBUTYNIN [Concomitant]
  7. PREDNISONE [Concomitant]
  8. FORTEO [Suspect]
     Dosage: 20 UG, QD
     Route: 065
  9. FORTEO [Suspect]
     Dosage: 20 UG, QD
     Route: 065
  10. SIMVASTATIN [Concomitant]
  11. COMBIVENT [Concomitant]
  12. FORTEO [Suspect]
     Indication: OSTEOPOROSIS
     Dosage: 20 UG, DAILY (1/D)
     Route: 065
     Dates: start: 20091101
  13. HYDROCHLORZIDE [Concomitant]
  14. AMBIEN CR [Concomitant]
  15. FLONASE [Concomitant]
  16. CALCIUM CARBONATE [Concomitant]
  17. FORTEO [Suspect]
     Dosage: 20 UG, DAILY (1/D)
     Route: 065
  18. FERROUS SULFATE TAB [Concomitant]
  19. ASPIRIN [Concomitant]
  20. COLACE [Concomitant]
  21. RELAFEN [Concomitant]
  22. VITAMIN D [Concomitant]
  23. GABAPENTIN [Concomitant]
  24. FIBER-LAX [Concomitant]
  25. VITAMIN E [Concomitant]
  26. CENTRUM [Concomitant]
  27. FOLIC ACID [Concomitant]
  28. VITAMIN B-12 [Concomitant]

REACTIONS (5)
  - SPINAL COMPRESSION FRACTURE [None]
  - FALL [None]
  - BALANCE DISORDER [None]
  - PERIPHERAL ARTERIAL OCCLUSIVE DISEASE [None]
  - FEMUR FRACTURE [None]
